FAERS Safety Report 6196027-2 (Version None)
Quarter: 2009Q2

REPORT INFORMATION
  Report Type: 
  Country: None (occurrence: None)
  Receive Date: 20090520
  Receipt Date: 20090518
  Transmission Date: 20091009
  Serious: Yes (Life-Threatening)
  Sender: FDA-Public Use
  Company Number: PHHY2009IT17780

PATIENT
  Sex: Female

DRUGS (3)
  1. VALSARTAN [Suspect]
     Indication: PROPHYLAXIS
     Dosage: 80 MG/DAY
     Route: 048
     Dates: start: 20070101
  2. VALSARTAN [Suspect]
     Indication: CEREBRAL HAEMORRHAGE
  3. EUTIROX [Concomitant]
     Dosage: 50 MG/DAY
     Route: 048

REACTIONS (1)
  - CEREBRAL HAEMORRHAGE [None]
